FAERS Safety Report 20157079 (Version 1)
Quarter: 2021Q4

REPORT INFORMATION
  Report Type: Spontaneous
  Country: US (occurrence: US)
  Receive Date: 20211207
  Receipt Date: 20211207
  Transmission Date: 20220303
  Serious: Yes (Other)
  Sender: FDA-Public Use
  Company Number: US-IBSA PHARMA INC.-2021IBS000077

PATIENT

DRUGS (1)
  1. TIROSINT [Suspect]
     Active Substance: LEVOTHYROXINE SODIUM
     Indication: Product used for unknown indication
     Dosage: 25 ?G, QD
     Dates: start: 20210209, end: 20210413

REACTIONS (9)
  - Blood pressure increased [Not Recovered/Not Resolved]
  - Dyspepsia [Recovered/Resolved]
  - Skin exfoliation [Recovered/Resolved]
  - Dysphonia [Recovered/Resolved]
  - Mobility decreased [Recovered/Resolved]
  - Chest pain [Recovered/Resolved]
  - Tremor [Not Recovered/Not Resolved]
  - Alopecia [Recovered/Resolved]
  - Product dose omission issue [Unknown]

NARRATIVE: CASE EVENT DATE: 20210101
